FAERS Safety Report 19561688 (Version 1)
Quarter: 2021Q3

REPORT INFORMATION
  Report Type: Spontaneous
  Country: US (occurrence: US)
  Receive Date: 20210716
  Receipt Date: 20210716
  Transmission Date: 20211014
  Serious: No
  Sender: FDA-Public Use
  Company Number: None

PATIENT
  Age: 74 Year
  Sex: Male
  Weight: 75.78 kg

DRUGS (12)
  1. ABIRATERONE. [Suspect]
     Active Substance: ABIRATERONE ACETATE
     Indication: PROSTATE CANCER
     Route: 048
     Dates: start: 20210519
  2. ONDANSETRON [Concomitant]
     Active Substance: ONDANSETRON
  3. TAMSULOSIN [Concomitant]
     Active Substance: TAMSULOSIN
  4. OMEPRAZOLE. [Concomitant]
     Active Substance: OMEPRAZOLE
  5. TIZANIDINE. [Concomitant]
     Active Substance: TIZANIDINE
  6. PREDNISONE. [Concomitant]
     Active Substance: PREDNISONE
  7. CLONAZEPAM. [Concomitant]
     Active Substance: CLONAZEPAM
  8. GABAPENTIN. [Concomitant]
     Active Substance: GABAPENTIN
  9. HYDROCODONE?APAP [Concomitant]
     Active Substance: ACETAMINOPHEN\HYDROCODONE
  10. VITAMIN D3 [Concomitant]
     Active Substance: CHOLECALCIFEROL
  11. SIMVASTATIN. [Concomitant]
     Active Substance: SIMVASTATIN
  12. OXYCODONE [Concomitant]
     Active Substance: OXYCODONE

REACTIONS (3)
  - Gastrooesophageal reflux disease [None]
  - Nausea [None]
  - Barrett^s oesophagus [None]

NARRATIVE: CASE EVENT DATE: 20210716
